FAERS Safety Report 25739468 (Version 2)
Quarter: 2025Q4

REPORT INFORMATION
  Report Type: Spontaneous
  Country: US (occurrence: US)
  Receive Date: 20250829
  Receipt Date: 20251021
  Transmission Date: 20260118
  Serious: No
  Sender: JOHNSON AND JOHNSON
  Company Number: US-JNJFOC-20250829916

PATIENT
  Age: 61 Year
  Sex: Male
  Weight: 74.83 kg

DRUGS (2)
  1. RILPIVIRINE [Suspect]
     Active Substance: RILPIVIRINE
     Indication: HIV infection
     Dosage: UNK, Q2M, 600/900MG
     Route: 030
     Dates: start: 20250501
  2. CABOTEGRAVIR [Suspect]
     Active Substance: CABOTEGRAVIR
     Indication: HIV infection
     Dosage: UNK, Q2M, 600/900MG
     Route: 030
     Dates: start: 20250501

REACTIONS (2)
  - Injection site pain [Recovered/Resolved]
  - Gait inability [Recovered/Resolved]
